FAERS Safety Report 10153030 (Version 1)
Quarter: 2014Q2

REPORT INFORMATION
  Report Type: Report from Study
  Country: US (occurrence: US)
  Receive Date: 20140505
  Receipt Date: 20140505
  Transmission Date: 20141212
  Serious: Yes (Hospitalization)
  Sender: FDA-Public Use
  Company Number: PHEH2014US008592

PATIENT
  Sex: Female

DRUGS (2)
  1. CLOZARIL [Suspect]
     Dosage: UNK
  2. CLOZARIL [Suspect]
     Dosage: 300 MG, DAILY

REACTIONS (3)
  - Clostridium difficile infection [Unknown]
  - Asthenia [Unknown]
  - Diarrhoea [Unknown]
